FAERS Safety Report 4372118-3 (Version None)
Quarter: 2004Q2

REPORT INFORMATION
  Report Type: 
  Country: None (occurrence: None)
  Receive Date: 20040607
  Receipt Date: 20020516
  Transmission Date: 20050107
  Serious: Yes (Death, Hospitalization, Other)
  Sender: FDA-Public Use
  Company Number: US-MERCK-0205USA02090

PATIENT
  Age: 89 Year
  Sex: Female
  Weight: 55 kg

DRUGS (8)
  1. [THERAPY UNSPECIFIED] [Concomitant]
     Indication: ANTICOAGULANT THERAPY
     Route: 065
     Dates: start: 19990801
  2. ASPIRIN [Concomitant]
     Indication: PROPHYLAXIS
     Route: 065
     Dates: start: 19990701, end: 20010701
  3. DIGOXIN [Concomitant]
     Route: 065
  4. LASIX [Concomitant]
     Indication: HYPERTENSION
     Route: 065
  5. LOPRESSOR [Concomitant]
     Indication: HYPERTENSION
     Route: 065
  6. VIOXX [Suspect]
     Indication: MONARTHRITIS
     Route: 048
     Dates: start: 19991001, end: 20010701
  7. VIOXX [Suspect]
     Route: 048
     Dates: end: 20010901
  8. VIOXX [Suspect]
     Route: 048
     Dates: end: 20011103

REACTIONS (34)
  - ANAEMIA [None]
  - AORTIC STENOSIS [None]
  - APHASIA [None]
  - ATRIAL FIBRILLATION [None]
  - BLOOD GLUCOSE INCREASED [None]
  - CALCINOSIS [None]
  - CARDIAC FAILURE [None]
  - CARDIAC MURMUR [None]
  - CARDIAC VALVE DISEASE [None]
  - CARDIOMEGALY [None]
  - CEREBRAL ARTERY OCCLUSION [None]
  - CEREBROVASCULAR ACCIDENT [None]
  - CONDITION AGGRAVATED [None]
  - CONVULSION [None]
  - DEATH [None]
  - DECREASED APPETITE [None]
  - DEHYDRATION [None]
  - DEMENTIA [None]
  - DEPRESSED LEVEL OF CONSCIOUSNESS [None]
  - DIARRHOEA [None]
  - EROSIVE DUODENITIS [None]
  - FACIAL PALSY [None]
  - GASTROINTESTINAL HAEMORRHAGE [None]
  - HEMIPARESIS [None]
  - HEMIPLEGIA [None]
  - HYPERTENSION [None]
  - HYPOTONIA [None]
  - INJURY [None]
  - MENTAL STATUS CHANGES [None]
  - MYOCARDIAL INFARCTION [None]
  - PNEUMONIA [None]
  - PULMONARY CONGESTION [None]
  - PUPILS UNEQUAL [None]
  - WEIGHT DECREASED [None]
